FAERS Safety Report 25721510 (Version 1)
Quarter: 2025Q3

REPORT INFORMATION
  Report Type: Spontaneous
  Country: EU (occurrence: EU)
  Receive Date: 20250825
  Receipt Date: 20250825
  Transmission Date: 20251020
  Serious: Yes (Hospitalization, Other)
  Sender: AUROBINDO
  Company Number: EU-EMA-DD-20250812-7482655-073158

PATIENT
  Age: 60 Year
  Sex: Female

DRUGS (4)
  1. MYCOPHENOLIC ACID [Suspect]
     Active Substance: MYCOPHENOLIC ACID
     Indication: Polymyositis
     Route: 065
  2. PREDNISONE [Concomitant]
     Active Substance: PREDNISONE
     Indication: Product used for unknown indication
     Dosage: 12.5 MILLIGRAM, ONCE A DAY
     Route: 065
  3. PREDNISONE [Concomitant]
     Active Substance: PREDNISONE
     Dosage: 30 MILLIGRAM, ONCE A DAY
     Route: 065
  4. LANSOPRAZOLE [Concomitant]
     Active Substance: LANSOPRAZOLE
     Indication: Product used for unknown indication
     Dosage: 30 MILLIGRAM, ONCE A DAY
     Route: 065

REACTIONS (13)
  - Oesophageal candidiasis [Unknown]
  - Oesophageal ulcer [Unknown]
  - Oesophageal stenosis [Unknown]
  - Oesophageal ulcer haemorrhage [Unknown]
  - Dysphagia [Unknown]
  - Oesophagitis [Unknown]
  - Stenosis [Unknown]
  - Muscle atrophy [Unknown]
  - Muscular weakness [Recovered/Resolved]
  - Dropped head syndrome [Unknown]
  - Calcinosis [Unknown]
  - Oral candidiasis [Unknown]
  - Product use in unapproved indication [Unknown]
